FAERS Safety Report 5281028-9 (Version None)
Quarter: 2007Q1

REPORT INFORMATION
  Report Type: 
  Country: None (occurrence: None)
  Receive Date: 20061229
  Receipt Date: 20060814
  Transmission Date: 20070707
  Serious: Yes (Other)
  Sender: FDA-Public Use
  Company Number: 2006UW16132

PATIENT
  Age: 52 Year
  Sex: Male
  Weight: 99.79 kg

DRUGS (10)
  1. CRESTOR [Suspect]
     Indication: BLOOD TRIGLYCERIDES INCREASED
     Dosage: 10 MG DAILY PO
     Route: 048
     Dates: start: 20050101
  2. CRESTOR [Suspect]
     Indication: BLOOD TRIGLYCERIDES INCREASED
     Dosage: 10 MG DAILY PO
     Route: 048
  3. CIREG [Concomitant]
  4. LISINOPRIL [Concomitant]
  5. WATER PILLS [Concomitant]
  6. METFORMIN HCL [Concomitant]
  7. INSULIN [Concomitant]
  8. POTASSIUM ACETATE [Concomitant]
  9. ASPIRIN [Concomitant]
  10. VITAMINS [Concomitant]

REACTIONS (3)
  - HYPOAESTHESIA [None]
  - MOVEMENT DISORDER [None]
  - NERVE INJURY [None]
